FAERS Safety Report 10083582 (Version 1)
Quarter: 2014Q2

REPORT INFORMATION
  Report Type: Spontaneous
  Country: US (occurrence: None)
  Receive Date: 20140416
  Receipt Date: 20140416
  Transmission Date: 20141212
  Serious: Yes (Hospitalization)
  Sender: FDA-Public Use
  Company Number: None

PATIENT
  Age: 65 Year
  Sex: Male
  Weight: 64.4 kg

DRUGS (1)
  1. BLEOMYCIN [Suspect]
     Indication: HODGKIN^S DISEASE
     Route: 042
     Dates: start: 20131227, end: 20131227

REACTIONS (5)
  - Hyperhidrosis [None]
  - Chills [None]
  - Chills [None]
  - Pyrexia [None]
  - Hypotension [None]
